FAERS Safety Report 16425414 (Version 3)
Quarter: 2020Q1

REPORT INFORMATION
  Report Type: Spontaneous
  Country: US (occurrence: US)
  Receive Date: 20190613
  Receipt Date: 20200127
  Transmission Date: 20200409
  Serious: Yes (Other)
  Sender: FDA-Public Use
  Company Number: US-PFIZER INC-2015382536

PATIENT
  Age: 68 Year
  Sex: Male

DRUGS (2)
  1. BENEFIX [Suspect]
     Active Substance: COAGULATION FACTOR IX RECOMBINANT HUMAN\ISOPROPYL ALCOHOL
     Indication: HAEMOPHILIA B WITHOUT INHIBITORS
     Dosage: 8200 IU, AS NEEDED [INFUSE 8200 UNITS (NOMINAL), ( +/-10%) = 100 U/KG 100% DOSE DAILY ON DEMAND]
     Dates: start: 20151106, end: 20151206
  2. BENEFIX [Suspect]
     Active Substance: COAGULATION FACTOR IX RECOMBINANT HUMAN\ISOPROPYL ALCOHOL
     Dosage: 8300 IU, AS NEEDED(AT 8300 U (+/-10%) DOSING DAILY FOR CURRENT BLEED + DAILY ON DEMAND FOR FUTURE)

REACTIONS (1)
  - Haemorrhage [Unknown]
